FAERS Safety Report 8011518-7 (Version None)
Quarter: 2011Q4

REPORT INFORMATION
  Report Type: 
  Country: None (occurrence: None)
  Receive Date: 20111228
  Receipt Date: 20111222
  Transmission Date: 20120403
  Serious: No
  Sender: FDA-Public Use
  Company Number: US-PFIZER INC-2011039532

PATIENT
  Sex: Female
  Weight: 61.224 kg

DRUGS (3)
  1. ARTHROTEC [Suspect]
     Indication: BACK PAIN
     Dosage: 50/0.2 MG, 3X/DAY
     Dates: start: 20110301, end: 20111201
  2. ARTHROTEC [Suspect]
     Indication: ARTHRALGIA
  3. MULTI-VITAMINS [Concomitant]
     Indication: SUPPLEMENTATION THERAPY
     Dosage: UNK

REACTIONS (3)
  - DYSPEPSIA [None]
  - CONSTIPATION [None]
  - ABDOMINAL PAIN UPPER [None]
